FAERS Safety Report 20351578 (Version 2)
Quarter: 2022Q2

REPORT INFORMATION
  Report Type: Report from Study
  Country: CA (occurrence: CA)
  Receive Date: 20220119
  Receipt Date: 20220602
  Transmission Date: 20220721
  Serious: Yes (Other)
  Sender: FDA-Public Use
  Company Number: None

PATIENT
  Age: 62 Year
  Sex: Female

DRUGS (4)
  1. METHOTREXATE [Suspect]
     Active Substance: METHOTREXATE
     Indication: Product used for unknown indication
     Dosage: 1 EVERY 1 WEEKS
     Route: 058
  2. BETAMETHASONE\CALCIPOTRIENE [Concomitant]
     Active Substance: BETAMETHASONE\CALCIPOTRIENE
     Indication: Product used for unknown indication
     Route: 061
  3. BETAMETHASONE VALERATE W/CLOTRIMAZO [Concomitant]
     Indication: Product used for unknown indication
     Route: 061
  4. HUMIRA [Concomitant]
     Active Substance: ADALIMUMAB
     Indication: Product used for unknown indication
     Dosage: SOLUTION SUBCUTANEOUS
     Route: 065

REACTIONS (9)
  - Anxiety [Unknown]
  - Treatment failure [Unknown]
  - Vomiting [Unknown]
  - Drug intolerance [Unknown]
  - Nausea [Unknown]
  - Pain [Unknown]
  - Pain of skin [Unknown]
  - Pruritus [Unknown]
  - Psoriasis [Unknown]
